FAERS Safety Report 11785220 (Version 8)
Quarter: 2020Q1

REPORT INFORMATION
  Report Type: Spontaneous
  Country: US (occurrence: US)
  Receive Date: 20151130
  Receipt Date: 20200224
  Transmission Date: 20200409
  Serious: No
  Sender: FDA-Public Use
  Company Number: US-PFIZER INC-2015377690

PATIENT
  Age: 52 Year
  Sex: Male
  Weight: 83 kg

DRUGS (15)
  1. RAPAMUNE [Suspect]
     Active Substance: SIROLIMUS
     Dosage: 1.5 MG, DAILY ( 0.5MG AND 1MG - TAKE 1.5MG DAILY)
     Route: 048
  2. RAPAMUNE [Suspect]
     Active Substance: SIROLIMUS
     Dosage: 1 MG, DAILY (TAKE 2 TABLETS (1MG TOTAL))
     Route: 048
  3. MAGNESIUM OXIDE. [Concomitant]
     Active Substance: MAGNESIUM OXIDE
     Dosage: 400 MG, 2X/DAY
  4. NORVASC [Concomitant]
     Active Substance: AMLODIPINE BESYLATE
     Dosage: 10 MG, 1X/DAY
  5. FOSAMAX [Concomitant]
     Active Substance: ALENDRONATE SODIUM
     Dosage: 70 MG, WEEKLY
  6. VITAMINS NOS [Concomitant]
     Active Substance: VITAMINS
     Dosage: UNK UNK, 1X/DAY
  7. RAPAMUNE [Suspect]
     Active Substance: SIROLIMUS
     Indication: HEART TRANSPLANT
     Dosage: 2 MG A DAY ALTERNATING WITH 1 MG, EVERY OTHER DAY
  8. CELLCEPT [Concomitant]
     Active Substance: MYCOPHENOLATE MOFETIL\MYCOPHENOLATE MOFETIL HYDROCHLORIDE
     Dosage: 1000 MG, 2X/DAY
  9. PRAVASTATIN. [Concomitant]
     Active Substance: PRAVASTATIN
     Indication: BLOOD CHOLESTEROL
     Dosage: 80 MG, 1X/DAY
  10. CALCIUM [Concomitant]
     Active Substance: CALCIUM
     Indication: SUPPLEMENTATION THERAPY
     Dosage: UNK
  11. RAPAMUNE [Suspect]
     Active Substance: SIROLIMUS
     Indication: RENAL DISORDER
     Dosage: UNK (RECEIVED 30 TABLETS INSTEAD OF THE 90 REQUESTED)
  12. RAPAMUNE [Suspect]
     Active Substance: SIROLIMUS
     Dosage: 1.5 MG, DAILY ( 0.5MG AND 1MG - TAKE 1.5MG DAILY)
     Route: 048
  13. RAPAMUNE [Suspect]
     Active Substance: SIROLIMUS
     Indication: TRANSPLANT REJECTION
     Dosage: 1.5 MG, 1X/DAY (0.5 MG AND 1 MG, 1X/DAY)
     Route: 048
     Dates: start: 20190620
  14. LISINOPRIL. [Concomitant]
     Active Substance: LISINOPRIL
     Dosage: 10 MG, 1X/DAY
  15. COUMADINE [Concomitant]
     Active Substance: WARFARIN SODIUM
     Dosage: 10 MG, 1X/DAY

REACTIONS (5)
  - Somnolence [Unknown]
  - Off label use [Unknown]
  - Weight increased [Unknown]
  - Breathing-related sleep disorder [Unknown]
  - Product use in unapproved indication [Unknown]
